FAERS Safety Report 8987268 (Version 2)
Quarter: 2013Q1

REPORT INFORMATION
  Report Type: Report from Study
  Country: FR (occurrence: FR)
  Receive Date: 20121227
  Receipt Date: 20130116
  Transmission Date: 20140127
  Serious: Yes (Hospitalization)
  Sender: FDA-Public Use
  Company Number: FR-SHIRE-ALL1-2012-06486

PATIENT
  Age: 9 Year
  Sex: Male
  Weight: 37.7 kg

DRUGS (10)
  1. IDURSULFASE [Suspect]
     Indication: MUCOPOLYSACCHARIDOSIS II
     Dosage: 18.85 MG, 1X/WEEK
     Route: 041
     Dates: start: 20061124
  2. CYAMEMAZINE [Concomitant]
     Indication: NEUROLEPTIC MALIGNANT SYNDROME
     Dosage: 10 GTT, 1X/DAY:QD
     Route: 048
     Dates: start: 200811, end: 201012
  3. CYAMEMAZINE [Concomitant]
     Dosage: UNK, OTHER (ONE DROP IN THE MORNING, EVERY TWO WEEKS AND 5 DROPS EVERY EVENING)
     Route: 048
     Dates: start: 20101215
  4. BUDESONIDE [Concomitant]
     Indication: RESPIRATORY DISORDER
     Dosage: UNK, UNKNOWN
     Route: 065
     Dates: start: 20081127
  5. DEXCHLORPHENIRAMINE [Concomitant]
     Indication: PREMEDICATION
     Dosage: 1 DF, 1X/WEEK
     Route: 065
     Dates: start: 20070131
  6. CETIRIZINE [Concomitant]
     Indication: PREMEDICATION
     Dosage: 20 GTT, 1X/WEEK
     Route: 065
     Dates: start: 20061227
  7. SALMETEROL [Concomitant]
     Indication: RESPIRATORY DISORDER
     Dosage: UNK, UNKNOWN
     Route: 065
     Dates: start: 200610
  8. RISPERIDONE [Concomitant]
     Indication: NERVOUS SYSTEM DISORDER
     Dosage: 0.5 MG, 1X/DAY:QD
     Route: 048
     Dates: start: 200610
  9. CARBAMAZEPINE [Concomitant]
     Indication: NERVOUS SYSTEM DISORDER
     Dosage: 100 MG, 2X/DAY:BID
     Route: 048
     Dates: start: 200512
  10. CAPTOPRIL [Concomitant]
     Indication: CARDIOVASCULAR DISORDER
     Dosage: 25 MG, 2X/DAY:BID
     Route: 048
     Dates: start: 200507

REACTIONS (5)
  - Ear infection [Recovered/Resolved]
  - Tonsillar hypertrophy [Recovered/Resolved]
  - Adenoidal hypertrophy [Recovered/Resolved]
  - Carpal tunnel syndrome [Recovered/Resolved]
  - Inguinal hernia [Recovered/Resolved]
